FAERS Safety Report 10706345 (Version 1)
Quarter: 2015Q1

REPORT INFORMATION
  Report Type: Report from Study
  Country: AU (occurrence: AU)
  Receive Date: 20150113
  Receipt Date: 20150113
  Transmission Date: 20150721
  Serious: Yes (Other)
  Sender: FDA-Public Use
  Company Number: AU-ROCHE-1519790

PATIENT
  Sex: Male
  Weight: 88 kg

DRUGS (3)
  1. ACTEMRA [Suspect]
     Active Substance: TOCILIZUMAB
     Dosage: ONGOING
     Route: 042
  2. ACTEMRA [Suspect]
     Active Substance: TOCILIZUMAB
     Indication: RHEUMATOID ARTHRITIS
     Dosage: ONGOING
     Route: 042
     Dates: start: 20130802, end: 20140328
  3. ACTEMRA [Suspect]
     Active Substance: TOCILIZUMAB
     Dosage: 6MG/KG
     Route: 042
     Dates: start: 201404

REACTIONS (2)
  - Pain [Unknown]
  - Musculoskeletal stiffness [Unknown]
